FAERS Safety Report 10226381 (Version 1)
Quarter: 2014Q2

REPORT INFORMATION
  Report Type: Spontaneous
  Country: US (occurrence: US)
  Receive Date: 20140609
  Receipt Date: 20140609
  Transmission Date: 20141212
  Serious: No
  Sender: FDA-Public Use
  Company Number: US-GILEAD-2014-0104585

PATIENT
  Age: 67 Year
  Sex: Male

DRUGS (6)
  1. SOFOSBUVIR [Suspect]
     Indication: HEPATITIS C
     Dosage: UNK
     Route: 065
     Dates: start: 201405
  2. SIMEPREVIR [Concomitant]
  3. METFORMIN [Concomitant]
     Dosage: 2 G, QD
  4. LOSARTAN [Concomitant]
  5. NIFEDIPINE [Concomitant]
  6. OMEPRAZOLE [Concomitant]

REACTIONS (1)
  - Blood creatinine increased [Unknown]
